FAERS Safety Report 7655111-4 (Version None)
Quarter: 2011Q3

REPORT INFORMATION
  Report Type: 
  Country: None (occurrence: None)
  Receive Date: 20110804
  Receipt Date: 20110725
  Transmission Date: 20111222
  Serious: Yes (Other)
  Sender: FDA-Public Use
  Company Number: CA-JNJFOC-20110712134

PATIENT
  Sex: Male
  Weight: 90 kg

DRUGS (5)
  1. METHOTREXATE [Concomitant]
     Route: 058
  2. REMICADE [Suspect]
     Indication: CROHN'S DISEASE
     Route: 042
  3. ACIDE FOLIQUE [Concomitant]
  4. SULFASALAZINE [Concomitant]
  5. REMICADE [Suspect]
     Indication: RHEUMATOID ARTHRITIS
     Route: 042

REACTIONS (1)
  - FALL [None]
